FAERS Safety Report 16475235 (Version 1)
Quarter: 2019Q2

REPORT INFORMATION
  Report Type: Spontaneous
  Country: US (occurrence: US)
  Receive Date: 20190625
  Receipt Date: 20190625
  Transmission Date: 20190711
  Serious: No
  Sender: FDA-Public Use
  Company Number: US-SA-2019SA169688

PATIENT
  Age: 51 Year
  Sex: Female
  Weight: 102.05 kg

DRUGS (1)
  1. KEVZARA [Suspect]
     Active Substance: SARILUMAB
     Dosage: 200 MG, QOW
     Route: 058
     Dates: start: 20190301

REACTIONS (3)
  - Fatigue [Unknown]
  - Nausea [Recovered/Resolved]
  - Pain [Unknown]
